FAERS Safety Report 4292490-2 (Version None)
Quarter: 2004Q1

REPORT INFORMATION
  Report Type: 
  Country: None (occurrence: None)
  Receive Date: 20040211
  Receipt Date: 20040202
  Transmission Date: 20041129
  Serious: Yes (Other)
  Sender: FDA-Public Use
  Company Number: PHFR2004GB00866

PATIENT
  Age: 60 Year
  Sex: Male

DRUGS (15)
  1. NATEGLINIDE [Suspect]
     Dosage: 120 MG, TID
     Route: 048
     Dates: start: 20030724, end: 20040104
  2. SIMVASTATIN [Concomitant]
     Dosage: 40 MG NOCTE
     Route: 065
     Dates: start: 20001229
  3. ISOSORBIDE MONONITRATE [Concomitant]
     Dosage: 2 DAILY
     Route: 065
     Dates: start: 20030122
  4. LANSOPRAZOLE [Concomitant]
     Dosage: 30 MG MANE
     Route: 065
     Dates: start: 20011208
  5. METFORMIN HCL [Concomitant]
     Dosage: 1000 MG, BID
     Route: 065
  6. NICORANDIL [Concomitant]
     Dosage: 2 TABLETS, BID
     Route: 065
     Dates: start: 20021114
  7. NITROLINGUAL PUMPSPRAY [Concomitant]
     Dosage: 2 SPRAYS
     Route: 060
     Dates: start: 20021026
  8. ORLISTAT [Concomitant]
     Dosage: 120 MG, BID
     Route: 065
     Dates: start: 20030130
  9. RAMIPRIL [Concomitant]
     Dosage: 5 MG, BID
     Route: 065
     Dates: start: 20011124
  10. ROSIGLITAZONE MALEATE [Concomitant]
     Dosage: 8 MG MANE
     Route: 065
     Dates: start: 20010922
  11. ASPIRIN [Concomitant]
     Dosage: 75 MG, QD
     Route: 065
     Dates: start: 20000111
  12. BISOPROLOL FUMARATE [Concomitant]
     Dosage: 5 MG, BID
     Route: 065
     Dates: start: 20020209
  13. CO-PROXAMOL [Concomitant]
     Dosage: 2 OT, TID
     Route: 065
     Dates: start: 20020601
  14. DIAZEPAM [Concomitant]
     Dosage: 2 MG, PRN
     Route: 065
  15. MEBEVERINE HYDROCHLORIDE [Concomitant]
     Dosage: 135 MG, BID
     Route: 065
     Dates: start: 19980424

REACTIONS (2)
  - ELECTROCARDIOGRAM ABNORMAL [None]
  - PALPITATIONS [None]
